FAERS Safety Report 4667492-4 (Version None)
Quarter: 2005Q2

REPORT INFORMATION
  Report Type: 
  Country: None (occurrence: None)
  Receive Date: 20050520
  Receipt Date: 20050513
  Transmission Date: 20051028
  Serious: Yes (Other)
  Sender: FDA-Public Use
  Company Number: 200514380GDDC

PATIENT
  Age: 75 Year
  Sex: Male

DRUGS (12)
  1. CLEXANE [Suspect]
     Route: 058
     Dates: start: 20031126, end: 20031129
  2. ASPIRIN [Suspect]
     Route: 048
     Dates: start: 20031126, end: 20031129
  3. CLOPIDOGREL BISULFATE [Suspect]
     Route: 048
     Dates: start: 20031126, end: 20031129
  4. AMIODARONE HCL [Concomitant]
     Dosage: DOSE: UNK
  5. OMEPRAZOLE [Concomitant]
     Dosage: DOSE: UNK
  6. NICORANDIL [Concomitant]
     Dosage: DOSE: UNK
  7. METOPROLOL [Concomitant]
     Dosage: DOSE: UNK
  8. CELECOXIB [Concomitant]
     Dosage: DOSE: UNK
  9. SERTRALINE HCL [Concomitant]
     Dosage: DOSE: UNK
  10. RAMIPRIL [Concomitant]
     Dosage: DOSE: UNK
  11. FRUSEMIDE [Concomitant]
     Dosage: DOSE: UNK
  12. QUETIAPINE FUMARATE [Concomitant]
     Dosage: DOSE: UNK

REACTIONS (5)
  - ANAEMIA [None]
  - BLOOD CREATININE INCREASED [None]
  - RESPIRATORY ARREST [None]
  - RETROPERITONEAL HAEMORRHAGE [None]
  - THROMBOCYTOPENIA [None]
